FAERS Safety Report 11716163 (Version 6)
Quarter: 2017Q1

REPORT INFORMATION
  Report Type: Spontaneous
  Country: FR (occurrence: FR)
  Receive Date: 20151109
  Receipt Date: 20170116
  Transmission Date: 20170428
  Serious: Yes (Hospitalization)
  Sender: FDA-Public Use
  Company Number: FR-B.I. PHARMACEUTICALS,INC./RIDGEFIELD-2015-BI-61225FF

PATIENT
  Age: 87 Year
  Sex: Male

DRUGS (5)
  1. TAHOR [Concomitant]
     Active Substance: ATORVASTATIN CALCIUM
     Indication: PRODUCT USED FOR UNKNOWN INDICATION
     Route: 048
     Dates: start: 2000
  2. PRADAXA [Suspect]
     Active Substance: DABIGATRAN ETEXILATE MESYLATE
     Indication: ATRIAL FIBRILLATION
     Route: 048
     Dates: start: 20140110, end: 20151023
  3. KARDEGIC [Suspect]
     Active Substance: ASPIRIN LYSINE
     Route: 048
     Dates: start: 201604
  4. KARDEGIC [Suspect]
     Active Substance: ASPIRIN LYSINE
     Indication: MYOCARDIAL ISCHAEMIA
     Route: 048
     Dates: start: 2000, end: 20151023
  5. MONOTILDIEM [Concomitant]
     Active Substance: DILTIAZEM
     Indication: PRODUCT USED FOR UNKNOWN INDICATION
     Route: 048
     Dates: start: 2000

REACTIONS (5)
  - Aphasia [Recovered/Resolved]
  - Subdural haemorrhage [Not Recovered/Not Resolved]
  - Headache [Recovered/Resolved]
  - Anticoagulation drug level above therapeutic [Recovered/Resolved]
  - Facial paralysis [Recovered/Resolved]

NARRATIVE: CASE EVENT DATE: 20151023
